FAERS Safety Report 5723858-2 (Version None)
Quarter: 2008Q2

REPORT INFORMATION
  Report Type: 
  Country: None (occurrence: None)
  Receive Date: 20080429
  Receipt Date: 20080429
  Transmission Date: 20081010
  Serious: Yes (Hospitalization)
  Sender: FDA-Public Use
  Company Number: None

PATIENT
  Age: 83 Year
  Sex: Male

DRUGS (9)
  1. CLOPIDOGREL [Suspect]
     Dosage: 75 MG DAILY PO
     Route: 048
     Dates: start: 20060628, end: 20060707
  2. VALSARTAN [Concomitant]
  3. ZETIA [Concomitant]
  4. PLAVIX [Concomitant]
  5. ASPIRIN [Concomitant]
  6. COREG [Concomitant]
  7. AMBIEN [Concomitant]
  8. ANCEF [Concomitant]
  9. SODIUM CHLORIDE [Concomitant]

REACTIONS (4)
  - HAEMATOMA [None]
  - PRESYNCOPE [None]
  - SINUS ARRHYTHMIA [None]
  - WOUND DEHISCENCE [None]
